FAERS Safety Report 17070940 (Version 1)
Quarter: 2019Q4

REPORT INFORMATION
  Report Type: Spontaneous
  Country: US (occurrence: US)
  Receive Date: 20191120
  Receipt Date: 20191120
  Transmission Date: 20200122
  Serious: Yes (Other)
  Sender: FDA-Public Use
  Company Number: None

PATIENT
  Age: 38 Year
  Sex: Male
  Weight: 85.5 kg

DRUGS (1)
  1. WINDSOR ES COMPARTIR MATE COCA [Suspect]
     Active Substance: ERYTHROXYLUM COCA LEAF\HERBALS
     Indication: PHYTOTHERAPY
     Dates: start: 20191022, end: 20191028

REACTIONS (1)
  - Drug screen positive [None]

NARRATIVE: CASE EVENT DATE: 20191028
